FAERS Safety Report 18587918 (Version 17)
Quarter: 2025Q2

REPORT INFORMATION
  Report Type: Report from Study
  Country: US (occurrence: US)
  Receive Date: 20201207
  Receipt Date: 20250613
  Transmission Date: 20250716
  Serious: Yes (Hospitalization, Other)
  Sender: TAKEDA
  Company Number: US-TAKEDA-2020TUS053884

PATIENT
  Age: 73 Year
  Sex: Female
  Weight: 93 kg

DRUGS (35)
  1. HUMAN IMMUNOGLOBULIN G\HYALURONIDASE RECOMBINANT HUMAN [Suspect]
     Active Substance: HUMAN IMMUNOGLOBULIN G\HYALURONIDASE (HUMAN RECOMBINANT)
     Indication: Hypogammaglobulinaemia
     Dosage: 25 GRAM, Q4WEEKS
  2. ZOCOR [Suspect]
     Active Substance: SIMVASTATIN
     Indication: Product used for unknown indication
  3. DIPHENHYDRAMINE [Concomitant]
     Active Substance: DIPHENHYDRAMINE
  4. KLONOPIN [Concomitant]
     Active Substance: CLONAZEPAM
  5. TRIAMTERENE AND HYDROCHLOROTHIAZIDE [Concomitant]
     Active Substance: HYDROCHLOROTHIAZIDE\TRIAMTERENE
  6. Digestive [Concomitant]
  7. LIDOCAINE [Concomitant]
     Active Substance: LIDOCAINE
  8. EPINEPHRINE [Concomitant]
     Active Substance: EPINEPHRINE
  9. FISH OIL [Concomitant]
     Active Substance: FISH OIL
  10. FISH OIL\OMEGA-3 FATTY ACIDS [Concomitant]
     Active Substance: FISH OIL\OMEGA-3 FATTY ACIDS
  11. ZYRTEC [Concomitant]
     Active Substance: CETIRIZINE HYDROCHLORIDE
  12. VITAMIN D3 [Concomitant]
     Active Substance: CHOLECALCIFEROL
  13. SODIUM CHLORIDE [Concomitant]
     Active Substance: SODIUM CHLORIDE
  14. ACETAMINOPHEN [Concomitant]
     Active Substance: ACETAMINOPHEN
  15. OLMESARTAN MEDOXOMIL [Concomitant]
     Active Substance: OLMESARTAN MEDOXOMIL
  16. VITAMIN B [Concomitant]
     Active Substance: VITAMIN B
  17. ALBUTEROL SULFATE [Concomitant]
     Active Substance: ALBUTEROL SULFATE
  18. COLACE [Concomitant]
     Active Substance: DOCUSATE SODIUM
  19. DEXAMETHASONE\NEOMYCIN SULFATE\POLYMYXIN B [Concomitant]
     Active Substance: DEXAMETHASONE\NEOMYCIN SULFATE\POLYMYXIN B
  20. VITAMIN B12 [Concomitant]
     Active Substance: CYANOCOBALAMIN
  21. MONTELUKAST SODIUM [Concomitant]
     Active Substance: MONTELUKAST SODIUM
  22. Lmx [Concomitant]
  23. SODIUM CHLORIDE [Concomitant]
     Active Substance: SODIUM CHLORIDE
  24. VENTOLIN [Concomitant]
     Active Substance: ALBUTEROL SULFATE
  25. ALBUTEROL SULFATE [Concomitant]
     Active Substance: ALBUTEROL SULFATE
  26. TRAMADOL HCL [Concomitant]
     Active Substance: TRAMADOL HYDROCHLORIDE
  27. NEOMYCIN\POLYMYXIN [Concomitant]
     Active Substance: NEOMYCIN\POLYMYXIN
  28. DIPHENHYDRAMINE HYDROCHLORIDE [Concomitant]
     Active Substance: DIPHENHYDRAMINE HYDROCHLORIDE
  29. MAGNESIUM OXIDE [Concomitant]
     Active Substance: MAGNESIUM OXIDE
  30. MAGNESIUM CITRATE [Concomitant]
     Active Substance: MAGNESIUM CITRATE
  31. METOPROLOL SUCCINATE [Concomitant]
     Active Substance: METOPROLOL SUCCINATE
  32. CARVEDILOL [Concomitant]
     Active Substance: CARVEDILOL
  33. CHLORHEXIDINE GLUCONATE [Concomitant]
     Active Substance: CHLORHEXIDINE GLUCONATE
  34. MAGNESIUM [Concomitant]
     Active Substance: MAGNESIUM
  35. MEDROL [Concomitant]
     Active Substance: METHYLPREDNISOLONE

REACTIONS (49)
  - Hyponatraemia [Unknown]
  - Blood potassium decreased [Unknown]
  - Dehydration [Unknown]
  - Facial pain [Unknown]
  - Pain [Unknown]
  - Nephrolithiasis [Unknown]
  - Norovirus infection [Unknown]
  - Blood sodium abnormal [Unknown]
  - Blood magnesium abnormal [Unknown]
  - Headache [Unknown]
  - Hypertension [Unknown]
  - Ligament sprain [Unknown]
  - COVID-19 [Recovering/Resolving]
  - Meniscus injury [Unknown]
  - Rash pruritic [Unknown]
  - Intentional overdose [Unknown]
  - Sinusitis [Unknown]
  - Cellulitis [Unknown]
  - Tooth infection [Unknown]
  - Dermatitis contact [Unknown]
  - Gastroenteritis viral [Unknown]
  - Illness [Unknown]
  - Bronchitis [Unknown]
  - Tooth fracture [Unknown]
  - Blood magnesium decreased [Unknown]
  - Weight decreased [Unknown]
  - Inappropriate schedule of product administration [Unknown]
  - Product distribution issue [Unknown]
  - Seasonal allergy [Unknown]
  - Allergic cough [Unknown]
  - Blood magnesium increased [Unknown]
  - Blood sodium decreased [Unknown]
  - Conjunctivitis [Recovered/Resolved]
  - Hypoaesthesia [Unknown]
  - Muscle spasms [Unknown]
  - Nausea [Unknown]
  - Arthralgia [Unknown]
  - Injection site pain [Unknown]
  - Pain in extremity [Unknown]
  - Infusion site haemorrhage [Unknown]
  - Infusion site mass [Unknown]
  - Abdominal distension [Unknown]
  - Myalgia [Unknown]
  - Back pain [Unknown]
  - Diarrhoea [Unknown]
  - Hypersensitivity [Unknown]
  - Infusion site discomfort [Unknown]
  - Vomiting [Unknown]
  - Urticaria [Unknown]

NARRATIVE: CASE EVENT DATE: 20240220
